FAERS Safety Report 7972743-4 (Version None)
Quarter: 2011Q4

REPORT INFORMATION
  Report Type: 
  Country: None (occurrence: None)
  Receive Date: 20111213
  Receipt Date: 20111208
  Transmission Date: 20120403
  Serious: Yes (Hospitalization)
  Sender: FDA-Public Use
  Company Number: FR-ROCHE-1020653

PATIENT

DRUGS (1)
  1. MABTHERA [Suspect]
     Indication: B-CELL LYMPHOMA

REACTIONS (1)
  - SQUAMOUS CELL CARCINOMA [None]
